FAERS Safety Report 6786190-4 (Version None)
Quarter: 2010Q2

REPORT INFORMATION
  Report Type: 
  Country: None (occurrence: None)
  Receive Date: 20100623
  Receipt Date: 20100618
  Transmission Date: 20101027
  Serious: Yes (Congenital Anomaly)
  Sender: FDA-Public Use
  Company Number: GB-TEVA-238135ISR

PATIENT
  Sex: Female

DRUGS (2)
  1. HYDROCORTISONE [Suspect]
     Indication: DERMATITIS ATOPIC
     Route: 064
  2. BETAMETHASONE VALERATE W/FUSIDIC ACID [Suspect]
     Indication: DERMATITIS ATOPIC
     Route: 064

REACTIONS (1)
  - CLEFT LIP [None]
